FAERS Safety Report 12809703 (Version 2)
Quarter: 2018Q1

REPORT INFORMATION
  Report Type: Spontaneous
  Country: US (occurrence: US)
  Receive Date: 20161005
  Receipt Date: 20180302
  Transmission Date: 20180508
  Serious: Yes (Hospitalization, Other)
  Sender: FDA-Public Use
  Company Number: US-ORION CORPORATION ORION PHARMA-16_00001936

PATIENT
  Age: 7 Year
  Sex: Male

DRUGS (2)
  1. DAPSONE. [Concomitant]
     Active Substance: DAPSONE
     Indication: ACUTE LYMPHOCYTIC LEUKAEMIA
     Route: 065
  2. METHOTREXATE. [Suspect]
     Active Substance: METHOTREXATE
     Indication: ACUTE LYMPHOCYTIC LEUKAEMIA
     Route: 065

REACTIONS (7)
  - Toxicity to various agents [Unknown]
  - Pneumonitis [Unknown]
  - Respiratory failure [Unknown]
  - Acute lung injury [Unknown]
  - Pneumocystis jirovecii pneumonia [Unknown]
  - Pneumonia cryptococcal [Unknown]
  - Encephalopathy [Recovering/Resolving]
